FAERS Safety Report 12713834 (Version 3)
Quarter: 2016Q3

REPORT INFORMATION
  Report Type: Report from Study
  Country: US (occurrence: US)
  Receive Date: 20160905
  Receipt Date: 20160923
  Transmission Date: 20161109
  Serious: Yes (Other)
  Sender: FDA-Public Use
  Company Number: US-AMGEN-USASL2016113729

PATIENT
  Age: 55 Year
  Sex: Female

DRUGS (1)
  1. ENBREL [Suspect]
     Active Substance: ETANERCEPT
     Indication: RHEUMATOID ARTHRITIS
     Dosage: UNK UNK, QWK
     Route: 065

REACTIONS (16)
  - Blood test abnormal [Unknown]
  - Rotator cuff syndrome [Not Recovered/Not Resolved]
  - Muscle atrophy [Unknown]
  - Weight increased [Unknown]
  - Synovial cyst [Not Recovered/Not Resolved]
  - Cyst [Unknown]
  - Peripheral swelling [Unknown]
  - Epistaxis [Not Recovered/Not Resolved]
  - Osteopenia [Unknown]
  - Chondropathy [Unknown]
  - Anaemia [Not Recovered/Not Resolved]
  - Exostosis [Unknown]
  - Arthropathy [Recovering/Resolving]
  - Fungal infection [Unknown]
  - Mass [Unknown]
  - Joint crepitation [Unknown]
